FAERS Safety Report 19643760 (Version 3)
Quarter: 2023Q4

REPORT INFORMATION
  Report Type: Spontaneous
  Country: US (occurrence: US)
  Receive Date: 20210730
  Receipt Date: 20231016
  Transmission Date: 20240109
  Serious: Yes (Other)
  Sender: FDA-Public Use
  Company Number: US-GILEAD-2021-0542361

PATIENT
  Age: 52 Year
  Sex: Male
  Weight: 112.47 kg

DRUGS (40)
  1. ATRIPLA [Suspect]
     Active Substance: EFAVIRENZ\EMTRICITABINE\TENOFOVIR DISOPROXIL FUMARATE
     Indication: HIV infection
     Dosage: UNK
     Route: 065
     Dates: start: 2008, end: 201001
  2. ATRIPLA [Suspect]
     Active Substance: EFAVIRENZ\EMTRICITABINE\TENOFOVIR DISOPROXIL FUMARATE
     Dosage: UNK
     Route: 048
     Dates: start: 2009
  3. ATRIPLA [Suspect]
     Active Substance: EFAVIRENZ\EMTRICITABINE\TENOFOVIR DISOPROXIL FUMARATE
     Dosage: UNK
     Route: 065
     Dates: start: 201111, end: 201601
  4. TRUVADA [Suspect]
     Active Substance: EMTRICITABINE\TENOFOVIR DISOPROXIL FUMARATE
     Indication: HIV infection
     Dosage: UNK
     Route: 048
     Dates: start: 2009
  5. COMPLERA [Suspect]
     Active Substance: EMTRICITABINE\RILPIVIRINE HYDROCHLORIDE\TENOFOVIR DISOPROXIL FUMARATE
     Indication: HIV infection
     Dosage: UNK
     Route: 065
     Dates: start: 201601, end: 201705
  6. BIKTARVY [Concomitant]
     Active Substance: BICTEGRAVIR SODIUM\EMTRICITABINE\TENOFOVIR ALAFENAMIDE FUMARATE
  7. DESCOVY [Concomitant]
     Active Substance: EMTRICITABINE\TENOFOVIR ALAFENAMIDE FUMARATE
  8. ODEFSEY [Concomitant]
     Active Substance: EMTRICITABINE\RILPIVIRINE HYDROCHLORIDE\TENOFOVIR ALAFENAMIDE FUMARATE
  9. COMBIVIR [Concomitant]
     Active Substance: LAMIVUDINE\ZIDOVUDINE
  10. EPIVIR [Concomitant]
     Active Substance: LAMIVUDINE
  11. RETROVIR [Concomitant]
     Active Substance: ZIDOVUDINE
  12. TIVICAY [Concomitant]
     Active Substance: DOLUTEGRAVIR SODIUM
  13. VIDEX [Concomitant]
     Active Substance: DIDANOSINE
  14. VIRAMUNE [Concomitant]
     Active Substance: NEVIRAPINE
  15. GABAPENTIN [Concomitant]
     Active Substance: GABAPENTIN
  16. LISINOPRIL [Concomitant]
     Active Substance: LISINOPRIL
  17. AMLODIPINE [Concomitant]
     Active Substance: AMLODIPINE BESYLATE
  18. NAPROXEN [Concomitant]
     Active Substance: NAPROXEN
  19. MIRTAZAPINE [Concomitant]
     Active Substance: MIRTAZAPINE
  20. ALPRAZOLAM [Concomitant]
     Active Substance: ALPRAZOLAM
  21. OXYCODONE [Concomitant]
     Active Substance: OXYCODONE
  22. CYCLOBENZAPRINE [Concomitant]
     Active Substance: CYCLOBENZAPRINE
  23. RAPIDIN [LORATADINE] [Concomitant]
  24. TRAZODONE [Concomitant]
     Active Substance: TRAZODONE HYDROCHLORIDE
  25. TAMSULOSIN HYDROCHLORIDE [Concomitant]
     Active Substance: TAMSULOSIN HYDROCHLORIDE
  26. AMOXICILLIN [Concomitant]
     Active Substance: AMOXICILLIN
  27. HYDROCODONE [Concomitant]
     Active Substance: HYDROCODONE
  28. ABILIFY [Concomitant]
     Active Substance: ARIPIPRAZOLE
  29. ONDANSETRON [Concomitant]
     Active Substance: ONDANSETRON
  30. FLONASE ALLERGY RELIEF [Concomitant]
     Active Substance: FLUTICASONE PROPIONATE
  31. URECHOLINE [Concomitant]
     Active Substance: BETHANECHOL CHLORIDE
  32. SENOKOT [Concomitant]
     Active Substance: SENNOSIDES
  33. ENZALUTAMIDE [Concomitant]
     Active Substance: ENZALUTAMIDE
  34. FAMOTIDINE [Concomitant]
     Active Substance: FAMOTIDINE
  35. BENZONATATE [Concomitant]
     Active Substance: BENZONATATE
  36. RAPAFLO [Concomitant]
     Active Substance: SILODOSIN
  37. MOMETASONE [Concomitant]
     Active Substance: MOMETASONE
  38. ASPIRIN [Concomitant]
     Active Substance: ASPIRIN
  39. MELOXICAM [Concomitant]
     Active Substance: MELOXICAM
  40. BUSPAR [Concomitant]
     Active Substance: BUSPIRONE HYDROCHLORIDE

REACTIONS (9)
  - Renal failure [Not Recovered/Not Resolved]
  - Renal impairment [Not Recovered/Not Resolved]
  - Pain [Not Recovered/Not Resolved]
  - Emotional distress [Not Recovered/Not Resolved]
  - Anxiety [Not Recovered/Not Resolved]
  - Osteopenia [Not Recovered/Not Resolved]
  - Anhedonia [Not Recovered/Not Resolved]
  - Bone pain [Unknown]
  - Depression [Not Recovered/Not Resolved]

NARRATIVE: CASE EVENT DATE: 20130301
